FAERS Safety Report 6152242-5 (Version None)
Quarter: 2009Q2

REPORT INFORMATION
  Report Type: 
  Country: None (occurrence: None)
  Receive Date: 20090410
  Receipt Date: 20090402
  Transmission Date: 20091009
  Serious: Yes (Hospitalization)
  Sender: FDA-Public Use
  Company Number: DE-ABBOTT-04P-062-0258986-01

PATIENT
  Sex: Female
  Weight: 58 kg

DRUGS (8)
  1. HUMIRA [Suspect]
     Indication: RHEUMATOID ARTHRITIS
     Dosage: 40 MILLIGRAM
     Route: 058
     Dates: start: 20040127
  2. ROFECOXIB [Concomitant]
     Indication: ANALGESIA
     Route: 048
     Dates: start: 19990101
  3. PREDNISOLONE [Concomitant]
     Indication: RHEUMATOID ARTHRITIS
     Route: 048
     Dates: start: 19970601
  4. METHOTREXATE [Concomitant]
     Indication: RHEUMATOID ARTHRITIS
     Route: 048
     Dates: start: 20010901
  5. FOLIC ACID [Concomitant]
     Indication: VITAMIN SUPPLEMENTATION
     Route: 048
     Dates: start: 20010901
  6. BELOC ZOK [Concomitant]
     Indication: HYPERTENSION
  7. DELIX [Concomitant]
     Indication: HYPERTENSION
     Dates: end: 20060101
  8. HUMIRA [Concomitant]
     Indication: RHEUMATOID ARTHRITIS
     Route: 058

REACTIONS (1)
  - POST PROCEDURAL HAEMORRHAGE [None]
